FAERS Safety Report 23290089 (Version 2)
Quarter: 2023Q4

REPORT INFORMATION
  Report Type: Spontaneous
  Country: US (occurrence: US)
  Receive Date: 20231212
  Receipt Date: 20231214
  Transmission Date: 20240110
  Serious: Yes (Other)
  Sender: FDA-Public Use
  Company Number: US-ELI_LILLY_AND_COMPANY-US202312004650

PATIENT
  Age: 57 Year
  Sex: Male

DRUGS (3)
  1. TRULICITY [Suspect]
     Active Substance: DULAGLUTIDE
     Indication: Product used for unknown indication
     Dosage: UNK UNK, UNKNOWN
     Route: 058
     Dates: start: 202201, end: 202204
  2. HUMULIN R [Suspect]
     Active Substance: INSULIN HUMAN
     Indication: Product used for unknown indication
     Dosage: UNK UNK, DAILY (DURING DAY)
     Route: 058
  3. HUMULIN R [Suspect]
     Active Substance: INSULIN HUMAN
     Indication: Product used for unknown indication
     Dosage: UNK UNK, EACH EVENING
     Route: 058
     Dates: end: 20231207

REACTIONS (11)
  - Pancreatitis [Unknown]
  - Pneumonia [Unknown]
  - Gait disturbance [Unknown]
  - Atypical pneumonia [Unknown]
  - COVID-19 [Unknown]
  - Dyspnoea [Recovering/Resolving]
  - Mental disorder [Unknown]
  - Asthenia [Unknown]
  - Fluid retention [Unknown]
  - Blood glucose increased [Not Recovered/Not Resolved]
  - Drug ineffective [Unknown]

NARRATIVE: CASE EVENT DATE: 20220101
